FAERS Safety Report 25241524 (Version 3)
Quarter: 2025Q4

REPORT INFORMATION
  Report Type: Report from Study
  Country: US (occurrence: US)
  Receive Date: 20250426
  Receipt Date: 20251223
  Transmission Date: 20260118
  Serious: Yes (Other)
  Sender: ABBVIE
  Company Number: US-ABBVIE-6244943

PATIENT
  Age: 76 Year
  Sex: Female

DRUGS (2)
  1. RINVOQ [Suspect]
     Active Substance: UPADACITINIB
     Indication: Colitis ulcerative
     Route: 048
     Dates: start: 20250214, end: 2025
  2. RINVOQ [Suspect]
     Active Substance: UPADACITINIB
     Indication: Colitis ulcerative
     Dosage: RESTARTED IN 2025
     Route: 048

REACTIONS (3)
  - Cataract [Unknown]
  - Lung disorder [Unknown]
  - Eye operation [Unknown]

NARRATIVE: CASE EVENT DATE: 20250417
